FAERS Safety Report 14775486 (Version 1)
Quarter: 2018Q2

REPORT INFORMATION
  Report Type: Spontaneous
  Country: CR (occurrence: CR)
  Receive Date: 20180418
  Receipt Date: 20180418
  Transmission Date: 20180711
  Serious: Yes (Other)
  Sender: FDA-Public Use
  Company Number: CR-PFIZER INC-2018156155

PATIENT
  Sex: Male

DRUGS (1)
  1. ALTRULINE [Suspect]
     Active Substance: SERTRALINE HYDROCHLORIDE
     Dosage: UNK

REACTIONS (3)
  - Rash [Not Recovered/Not Resolved]
  - Cellulitis [Unknown]
  - Hypersensitivity [Not Recovered/Not Resolved]
